FAERS Safety Report 6557914-6 (Version None)
Quarter: 2010Q1

REPORT INFORMATION
  Report Type: 
  Country: None (occurrence: None)
  Receive Date: 20100127
  Receipt Date: 20100127
  Transmission Date: 20100710
  Serious: No
  Sender: FDA-Public Use
  Company Number: None

PATIENT
  Sex: Male
  Weight: 110 kg

DRUGS (3)
  1. CARVEDILOL [Suspect]
     Indication: CARDIAC FAILURE
     Dosage: 50 MG TWICE DAILY ORAL
     Route: 048
     Dates: start: 20100105, end: 20100120
  2. CARVEDILOL [Suspect]
     Indication: HYPERTENSION
     Dosage: 50 MG TWICE DAILY ORAL
     Route: 048
     Dates: start: 20100105, end: 20100120
  3. TEVA GENERIC FOR COREG [Concomitant]

REACTIONS (1)
  - HYPERTENSION [None]
